FAERS Safety Report 25172799 (Version 1)
Quarter: 2025Q2

REPORT INFORMATION
  Report Type: Spontaneous
  Country: US (occurrence: US)
  Receive Date: 20250408
  Receipt Date: 20250408
  Transmission Date: 20250716
  Serious: No
  Sender: GRIFOLS
  Company Number: US-IGSA-BIG0033901

PATIENT
  Age: 61 Year
  Sex: Female
  Weight: 54.422 kg

DRUGS (17)
  1. GAMMAKED [Suspect]
     Active Substance: HUMAN IMMUNOGLOBULIN G
     Indication: Myasthenia gravis
     Dosage: 50 GRAM, Q.4WK.
     Route: 042
     Dates: start: 20250311
  2. GAMMAKED [Suspect]
     Active Substance: HUMAN IMMUNOGLOBULIN G
     Indication: Off label use
  3. APAP [Concomitant]
     Active Substance: ACETAMINOPHEN
     Indication: Premedication
     Dates: start: 20250311, end: 20250311
  4. DIPHENHYDRAMINE [Concomitant]
     Active Substance: DIPHENHYDRAMINE
     Indication: Premedication
     Dates: start: 20250311, end: 20250311
  5. ASCORBIC ACID [Concomitant]
     Active Substance: ASCORBIC ACID
  6. BUPROPION [Concomitant]
     Active Substance: BUPROPION
  7. CALCIUM CARBONATE [Concomitant]
     Active Substance: CALCIUM CARBONATE
  8. CLONAZEPAM [Concomitant]
     Active Substance: CLONAZEPAM
  9. ESTRADIOL [Concomitant]
     Active Substance: ESTRADIOL
  10. MELATONIN [Concomitant]
     Active Substance: MELATONIN
  11. MINOXIDIL [Concomitant]
     Active Substance: MINOXIDIL
  12. PREDNISONE [Concomitant]
     Active Substance: PREDNISONE
  13. PROGESTERONE [Concomitant]
     Active Substance: PROGESTERONE
  14. VALACYCLOVIR HYDROCHLORIDE [Concomitant]
     Active Substance: VALACYCLOVIR HYDROCHLORIDE
  15. VILAZODONE [Concomitant]
     Active Substance: VILAZODONE
  16. GEMTESA [Concomitant]
     Active Substance: VIBEGRON
  17. PYRIDOSTIGMINE [Concomitant]
     Active Substance: PYRIDOSTIGMINE

REACTIONS (2)
  - Urticaria [Recovered/Resolved]
  - Injection site urticaria [Recovered/Resolved]

NARRATIVE: CASE EVENT DATE: 20250311
